FAERS Safety Report 9978295 (Version 1)
Quarter: 2014Q1

REPORT INFORMATION
  Report Type: Spontaneous
  Country: FR (occurrence: FR)
  Receive Date: 20140306
  Receipt Date: 20140306
  Transmission Date: 20141002
  Serious: Yes (Other)
  Sender: FDA-Public Use
  Company Number: PHHY2014FR027844

PATIENT
  Age: 71 Year
  Sex: Female

DRUGS (1)
  1. ACLASTA [Suspect]
     Dosage: 5 MG, ONE INFUSION PER YEAR
     Route: 042
     Dates: start: 2011

REACTIONS (2)
  - Osteonecrosis [Not Recovered/Not Resolved]
  - Impaired healing [Unknown]
